FAERS Safety Report 7988483-1 (Version None)
Quarter: 2011Q4

REPORT INFORMATION
  Report Type: 
  Country: None (occurrence: None)
  Receive Date: 20111216
  Receipt Date: 20111206
  Transmission Date: 20120403
  Serious: Yes (Hospitalization)
  Sender: FDA-Public Use
  Company Number: US-MERCK-1108USA01131

PATIENT
  Age: 61 Year
  Sex: Female
  Weight: 88 kg

DRUGS (4)
  1. PRAVASTATIN SODIUM [Concomitant]
     Indication: BLOOD CHOLESTEROL
     Route: 065
  2. PREMPRO [Concomitant]
     Route: 065
     Dates: start: 20000101
  3. FOSAMAX [Suspect]
     Indication: OSTEOPOROSIS
     Route: 048
     Dates: start: 20000101, end: 20100901
  4. VERAPAMIL [Concomitant]
     Indication: HYPERTENSION
     Route: 065

REACTIONS (55)
  - MAMMOGRAM ABNORMAL [None]
  - CATARACT [None]
  - POSTMENOPAUSAL HAEMORRHAGE [None]
  - DRUG HYPERSENSITIVITY [None]
  - JOINT EFFUSION [None]
  - OBESITY [None]
  - CARDIAC MURMUR [None]
  - PATELLOFEMORAL PAIN SYNDROME [None]
  - DERMATITIS [None]
  - ARTHRALGIA [None]
  - URINARY TRACT INFECTION [None]
  - TYPE 2 DIABETES MELLITUS [None]
  - MUSCLE STRAIN [None]
  - RIB FRACTURE [None]
  - MUSCLE SPASMS [None]
  - FEMUR FRACTURE [None]
  - CHONDROPATHY [None]
  - ARTHRITIS [None]
  - ROAD TRAFFIC ACCIDENT [None]
  - DIARRHOEA [None]
  - DIABETIC NEUROPATHY [None]
  - OSTEOARTHRITIS [None]
  - OEDEMA PERIPHERAL [None]
  - NAUSEA [None]
  - TENDON INJURY [None]
  - DIZZINESS [None]
  - BARRETT'S OESOPHAGUS [None]
  - CALCIUM DEFICIENCY [None]
  - PAIN IN EXTREMITY [None]
  - GASTROOESOPHAGEAL REFLUX DISEASE [None]
  - OCULAR HYPERTENSION [None]
  - IMPETIGO [None]
  - HYPOVOLAEMIA [None]
  - GLAUCOMA [None]
  - ANXIETY [None]
  - BRONCHOSPASM [None]
  - ALLERGY TO METALS [None]
  - ABDOMINAL HERNIA [None]
  - FOOT DEFORMITY [None]
  - TYPE V HYPERLIPIDAEMIA [None]
  - CLOSTRIDIUM DIFFICILE COLITIS [None]
  - CYSTITIS [None]
  - DENTAL CARIES [None]
  - DEPRESSION [None]
  - DRUG INEFFECTIVE [None]
  - SYNOVIAL CYST [None]
  - SPINAL OSTEOARTHRITIS [None]
  - POST PROCEDURAL HAEMORRHAGE [None]
  - VIRAL INFECTION [None]
  - POLLAKIURIA [None]
  - TRIGGER FINGER [None]
  - MIGRAINE [None]
  - INSOMNIA [None]
  - HOT FLUSH [None]
  - FOOT FRACTURE [None]
